FAERS Safety Report 4437651-4 (Version None)
Quarter: 2004Q3

REPORT INFORMATION
  Report Type: 
  Country: None (occurrence: None)
  Receive Date: 20040827
  Receipt Date: 20040803
  Transmission Date: 20050211
  Serious: Yes (Disabling)
  Sender: FDA-Public Use
  Company Number: 2004229487CN

PATIENT
  Sex: 0

DRUGS (1)
  1. PHARMORUBICIN(EPIRUBICIN HYDROCHLORIDE)POWDER, STERILE [Suspect]
     Dosage: IV
     Route: 042
     Dates: start: 20020101, end: 20020101

REACTIONS (2)
  - EXTRAVASATION [None]
  - NECROSIS [None]
